FAERS Safety Report 8432236-7 (Version None)
Quarter: 2012Q2

REPORT INFORMATION
  Report Type: 
  Country: None (occurrence: None)
  Receive Date: 20120613
  Receipt Date: 20120606
  Transmission Date: 20120825
  Serious: Yes (Other)
  Sender: FDA-Public Use
  Company Number: PHHY2012BR049671

PATIENT
  Age: 72 Year
  Sex: Female

DRUGS (1)
  1. ONBREZ [Suspect]

REACTIONS (5)
  - MEDICATION ERROR [None]
  - EMPHYSEMA [None]
  - PARKINSON'S DISEASE [None]
  - DEPRESSION [None]
  - HYPERTENSION [None]
